FAERS Safety Report 6897923-0 (Version None)
Quarter: 2010Q3

REPORT INFORMATION
  Report Type: 
  Country: None (occurrence: None)
  Receive Date: 20100802
  Receipt Date: 20070806
  Transmission Date: 20110219
  Serious: No
  Sender: FDA-Public Use
  Company Number: US-PFIZER INC-2007066658

PATIENT
  Sex: Female
  Weight: 66.4 kg

DRUGS (3)
  1. LYRICA [Suspect]
     Indication: NEURALGIA
     Route: 048
     Dates: start: 20060101
  2. SYNTHROID [Concomitant]
  3. ELAVIL [Concomitant]

REACTIONS (1)
  - PAIN IN EXTREMITY [None]
